FAERS Safety Report 7638759-2 (Version None)
Quarter: 2011Q3

REPORT INFORMATION
  Report Type: 
  Country: None (occurrence: None)
  Receive Date: 20110727
  Receipt Date: 20110720
  Transmission Date: 20111222
  Serious: Yes (Death, Life-Threatening, Hospitalization, Other)
  Sender: FDA-Public Use
  Company Number: US-ROCHE-786155

PATIENT
  Age: 63 Year
  Sex: Male
  Weight: 94.1 kg

DRUGS (4)
  1. BLINDED BEVACIZUMAB [Suspect]
     Dosage: DOSE: BLINDED, CYCLE 1, DAY 1. LAST DOSE PRIOR TO SAE: 01 JUNE 2011
     Route: 042
     Dates: start: 20110601
  2. MORPHINE [Suspect]
     Route: 065
  3. CISPLATIN [Suspect]
     Dosage: ON DAY 1, CYCLE 1
     Route: 042
     Dates: start: 20110601
  4. GEMCITABINE [Suspect]
     Dosage: OVER 30 MIN ON DAYS 1 AND 8 FOR CYCLE 1-6, LAST DOSE: 08 JUNE 2011
     Route: 042
     Dates: start: 20110601

REACTIONS (7)
  - CONSTIPATION [None]
  - HYPOPHOSPHATAEMIA [None]
  - WHITE BLOOD CELL COUNT DECREASED [None]
  - ILEUS [None]
  - DEHYDRATION [None]
  - CARDIAC ARREST [None]
  - PLATELET COUNT DECREASED [None]
